FAERS Safety Report 17295070 (Version 3)
Quarter: 2020Q1

REPORT INFORMATION
  Report Type: Spontaneous
  Country: JP (occurrence: JP)
  Receive Date: 20200121
  Receipt Date: 20200213
  Transmission Date: 20200409
  Serious: Yes (Death)
  Sender: FDA-Public Use
  Company Number: JP-CELGENEUS-JPN-20200106190

PATIENT
  Age: 81 Year
  Sex: Male
  Weight: 60.5 kg

DRUGS (5)
  1. ABRAXANE [Suspect]
     Active Substance: PACLITAXEL
     Indication: LUNG ADENOCARCINOMA
     Dosage: 120 MILLIGRAM
     Route: 041
     Dates: start: 20191218, end: 20191218
  2. CARBOPLATIN. [Suspect]
     Active Substance: CARBOPLATIN
     Indication: LUNG ADENOCARCINOMA
     Dosage: 350 MILLIGRAM
     Route: 041
     Dates: start: 20191218, end: 20191218
  3. ALOXI [Suspect]
     Active Substance: PALONOSETRON HYDROCHLORIDE
     Indication: PROPHYLAXIS OF NAUSEA AND VOMITING
     Dosage: .75 MILLIGRAM
     Route: 065
     Dates: start: 20191218, end: 20191218
  4. SPIOLTO [Concomitant]
     Active Substance: OLODATEROL HYDROCHLORIDE\TIOTROPIUM BROMIDE MONOHYDRATE
     Indication: CHRONIC OBSTRUCTIVE PULMONARY DISEASE
     Dosage: 2 PUFFS
     Route: 065
     Dates: start: 20191121, end: 20191224
  5. DEXAMETHASONE SODIUM PHOSPHATE. [Concomitant]
     Active Substance: DEXAMETHASONE SODIUM PHOSPHATE
     Indication: PROPHYLAXIS OF NAUSEA AND VOMITING
     Dosage: 4.95 MILLIGRAM
     Route: 065
     Dates: start: 20191218, end: 20191218

REACTIONS (4)
  - Liver disorder [Unknown]
  - Sepsis [Fatal]
  - Diarrhoea [Fatal]
  - Dehydration [Fatal]

NARRATIVE: CASE EVENT DATE: 201912
